FAERS Safety Report 25257655 (Version 1)
Quarter: 2025Q2

REPORT INFORMATION
  Report Type: Spontaneous
  Country: JP (occurrence: JP)
  Receive Date: 20250430
  Receipt Date: 20250430
  Transmission Date: 20250717
  Serious: Yes (Hospitalization, Disabling, Other)
  Sender: MERCK SHARP & DOHME LLC
  Company Number: JP-MSD-M2023-43485

PATIENT
  Age: 44 Year
  Sex: Female
  Weight: 57 kg

DRUGS (6)
  1. KEYTRUDA [Suspect]
     Active Substance: PEMBROLIZUMAB
     Indication: Triple negative breast cancer
     Dosage: DOSE DESCRIPTION : 200 MILLIGRAM, Q3W?DAILY DOSE : 9.4 MILLIGRAM?REGIMEN DOSE : 800  MILLIGRAM
     Route: 041
     Dates: start: 20230710, end: 20231002
  2. CARBOPLATIN [Suspect]
     Active Substance: CARBOPLATIN
     Indication: Triple negative breast cancer
     Dosage: DOSE DESCRIPTION : 180 MILLIGRAM, QW?DAILY DOSE : 25.74 MILLIGRAM?REGIMEN DOSE : 1980  MILLIGRAM
     Route: 041
     Dates: start: 20230710, end: 20230922
  3. PACLITAXEL [Suspect]
     Active Substance: PACLITAXEL
     Indication: Triple negative breast cancer
     Dosage: DOSE DESCRIPTION : 130 MILLIGRAM, QW?DAILY DOSE : 18.59 MILLIGRAM?REGIMEN DOSE : 1430  MILLIGRAM
     Route: 065
     Dates: start: 20230710, end: 20230922
  4. DEXAMETHASONE SODIUM PHOSPHATE [Suspect]
     Active Substance: DEXAMETHASONE SODIUM PHOSPHATE
     Indication: Urticaria
     Dosage: DOSE DESCRIPTION : 9.9 MILLIGRAM, QD?DAILY DOSE : 9.9 MILLIGRAM?REGIMEN DOSE : 9.9  MILLIGRAM
     Route: 041
     Dates: start: 20231002, end: 20231002
  5. POLARAMINE [Suspect]
     Active Substance: DEXCHLORPHENIRAMINE MALEATE
     Indication: Urticaria
     Dosage: DOSE DESCRIPTION : 5 MILLIGRAM, BID?DAILY DOSE : 10 MILLIGRAM?REGIMEN DOSE : 10  MILLIGRAM
     Route: 041
     Dates: start: 20231002, end: 20231002
  6. SODIUM CHLORIDE [Suspect]
     Active Substance: SODIUM CHLORIDE
     Route: 065
     Dates: start: 2023

REACTIONS (4)
  - Iritis [Not Recovered/Not Resolved]
  - Malaise [Recovered/Resolved]
  - Urticaria [Recovered/Resolved]
  - Rash [Recovered/Resolved]

NARRATIVE: CASE EVENT DATE: 20230913
